FAERS Safety Report 8188318-0 (Version None)
Quarter: 2012Q1

REPORT INFORMATION
  Report Type: 
  Country: None (occurrence: None)
  Receive Date: 20120306
  Receipt Date: 20111028
  Transmission Date: 20120608
  Serious: Yes (Hospitalization)
  Sender: FDA-Public Use
  Company Number: US-ROCHE-1008258

PATIENT
  Sex: Female

DRUGS (6)
  1. VITAMIN AND MINERAL PRENATAL SUPPLEMENT W/ FOLIC ACID CAP [Concomitant]
     Indication: PREGNANCY
     Route: 064
  2. VENTOLIN [Concomitant]
     Indication: ASTHMA
     Route: 064
  3. THEOPHYLLINE [Concomitant]
     Indication: ASTHMA
     Route: 064
  4. OMALIZUMAB [Suspect]
     Indication: ASTHMA
     Route: 064
     Dates: start: 20100601
  5. DULCOLAX [Concomitant]
     Indication: HAEMORRHOIDS
     Route: 064
  6. GLYBURIDE [Concomitant]
     Indication: GESTATIONAL DIABETES
     Route: 064

REACTIONS (2)
  - FOETAL HEART RATE DECELERATION [None]
  - MATERNAL EXPOSURE TIMING UNSPECIFIED [None]
